FAERS Safety Report 20061920 (Version 1)
Quarter: 2021Q4

REPORT INFORMATION
  Report Type: Spontaneous
  Country: GB (occurrence: GB)
  Receive Date: 20211112
  Receipt Date: 20211112
  Transmission Date: 20220303
  Serious: Yes (Other)
  Sender: FDA-Public Use
  Company Number: None

PATIENT
  Age: 46 Year
  Sex: Female

DRUGS (18)
  1. MYCOPHENOLATE MOFETIL [Suspect]
     Active Substance: MYCOPHENOLATE MOFETIL
     Indication: Prophylaxis against transplant rejection
     Dosage: DOSE FROM 10/06/21 ; 250MG TWICE DAILY
     Route: 048
     Dates: start: 20190119, end: 20211028
  2. TACROLIMUS [Concomitant]
     Active Substance: TACROLIMUS
  3. ASPIRIN [Concomitant]
     Active Substance: ASPIRIN
  4. BISOPROLOL [Concomitant]
     Active Substance: BISOPROLOL
  5. CEPHALEXIN [Concomitant]
     Active Substance: CEPHALEXIN
  6. CLONAZEPAM [Concomitant]
     Active Substance: CLONAZEPAM
  7. EVACAL D3 [Concomitant]
     Dosage: CHEWABLE
  8. FERROUS FUMARATE [Concomitant]
     Active Substance: FERROUS FUMARATE
  9. FLUCONAZOLE [Concomitant]
     Active Substance: FLUCONAZOLE
  10. FOLIC ACID [Concomitant]
     Active Substance: FOLIC ACID
  11. GABAPENTIN [Concomitant]
     Active Substance: GABAPENTIN
  12. LACTULOSE [Concomitant]
     Active Substance: LACTULOSE
  13. NORIDAY [Concomitant]
     Active Substance: MESTRANOL\NORETHINDRONE
  14. NYSTATIN [Concomitant]
     Active Substance: NYSTATIN
  15. OMEPRAZOLE [Concomitant]
     Active Substance: OMEPRAZOLE
  16. ACETAMINOPHEN [Concomitant]
     Active Substance: ACETAMINOPHEN
  17. PREDNISOLONE [Concomitant]
     Active Substance: PREDNISOLONE
  18. SODIUM BICARBONATE [Concomitant]
     Active Substance: SODIUM BICARBONATE

REACTIONS (1)
  - Oral candidiasis [Not Recovered/Not Resolved]
